FAERS Safety Report 9383141 (Version 1)
Quarter: 2013Q3

REPORT INFORMATION
  Report Type: Report from Study
  Country: US (occurrence: US)
  Receive Date: 20130704
  Receipt Date: 20130704
  Transmission Date: 20140515
  Serious: Yes (Other)
  Sender: FDA-Public Use
  Company Number: US-ASTRAZENECA-2013SE41612

PATIENT
  Age: 24 Year
  Sex: Female

DRUGS (2)
  1. NEXIUM [Suspect]
     Indication: SMALL INTESTINE ULCER
     Route: 048
  2. UNKNOWN OTC [Suspect]
     Route: 065

REACTIONS (3)
  - Full blood count decreased [Unknown]
  - Haemorrhage [Unknown]
  - Intentional drug misuse [Unknown]
